FAERS Safety Report 10996985 (Version 2)
Quarter: 2015Q3

REPORT INFORMATION
  Report Type: Spontaneous
  Country: FR (occurrence: FR)
  Receive Date: 20150408
  Receipt Date: 20150708
  Transmission Date: 20151125
  Serious: Yes (Other)
  Sender: FDA-Public Use
  Company Number: FR-AUROBINDO-AUR-APL-2015-02989

PATIENT
  Age: 75 Year
  Sex: Male

DRUGS (3)
  1. ZYLORIC [Concomitant]
     Active Substance: ALLOPURINOL
     Indication: HYPERURICAEMIA
     Dosage: 100 MG, DAILY
     Route: 065
  2. AMOXICILLIN ARROW FILM-COATED DISPERSIBLE TABLET [Suspect]
     Active Substance: AMOXICILLIN
     Indication: SINUSITIS
     Dosage: 1 G, TWO TIMES A DAY
     Route: 048
     Dates: start: 20150323, end: 20150326
  3. TADENAN [Concomitant]
     Active Substance: PYGEUM
     Indication: PROSTATIC DISORDER
     Dosage: UNK
     Route: 065

REACTIONS (2)
  - Oxygen saturation decreased [Unknown]
  - Dyspnoea [Recovered/Resolved]

NARRATIVE: CASE EVENT DATE: 20150326
